FAERS Safety Report 25988913 (Version 1)
Quarter: 2025Q4

REPORT INFORMATION
  Report Type: Spontaneous
  Country: CA (occurrence: CA)
  Receive Date: 20251103
  Receipt Date: 20251103
  Transmission Date: 20260117
  Serious: Yes (Other)
  Sender: TEVA
  Company Number: CA-TEVA-VS-3388269

PATIENT
  Sex: Female

DRUGS (7)
  1. BUPROPION [Suspect]
     Active Substance: BUPROPION
     Indication: Product used for unknown indication
     Route: 065
  2. MONTELUKAST SODIUM [Suspect]
     Active Substance: MONTELUKAST SODIUM
     Indication: Dermatitis atopic
     Dosage: DOSE FORM :GRANULATE
     Route: 065
  3. FLUOXETINE [Suspect]
     Active Substance: FLUOXETINE HYDROCHLORIDE
     Indication: Product used for unknown indication
     Dosage: FLUOXETINE HYDROCHLORIDE
     Route: 065
  4. OMALIZUMAB [Concomitant]
     Active Substance: OMALIZUMAB
     Indication: Food allergy
     Dosage: DOSE FORM : NOT SPECIFIED
     Route: 058
  5. BETAMETHASONE [Suspect]
     Active Substance: BETAMETHASONE
     Indication: Dermatitis atopic
     Dosage: BETAMETHASONE VALERATE
     Route: 065
  6. SEMAGLUTIDE [Suspect]
     Active Substance: SEMAGLUTIDE
     Indication: Product used for unknown indication
     Dosage: DOSE FORM : NOT SPECIFIED
     Route: 058
  7. CROMOLYN SODIUM [Suspect]
     Active Substance: CROMOLYN SODIUM
     Indication: Product used for unknown indication
     Route: 065

REACTIONS (2)
  - Dermatitis atopic [Unknown]
  - Product use in unapproved indication [Unknown]
